FAERS Safety Report 4509168-X (Version None)
Quarter: 2004Q4

REPORT INFORMATION
  Report Type: 
  Country: None (occurrence: None)
  Receive Date: 20041025
  Receipt Date: 20040806
  Transmission Date: 20050328
  Serious: Yes (Hospitalization)
  Sender: FDA-Public Use
  Company Number: US-JNJFOC-20040802379

PATIENT
  Age: 72 Year
  Sex: Female

DRUGS (9)
  1. INFLIXIMAB (INFLIXIMAB, RECOMBINANT) LYOPHILIZED POWDER [Suspect]
     Indication: RHEUMATOID ARTHRITIS
     Dosage: INTRAVENOUS
     Route: 042
     Dates: start: 20020510, end: 20030101
  2. METHOTREXATE [Concomitant]
  3. VIOXX [Concomitant]
  4. PREVACID [Concomitant]
  5. FOLTZ (ALL OTHER THERAPEUTIC PRODUCTS) [Concomitant]
  6. FOLIC ACID [Concomitant]
  7. HYDROCHLOROTHIAZIDE [Concomitant]
  8. LOTREL (LOTREL) [Concomitant]
  9. POTASSIUM ACETATE [Concomitant]

REACTIONS (1)
  - INFECTION [None]
